FAERS Safety Report 13232830 (Version 1)
Quarter: 2017Q1

REPORT INFORMATION
  Report Type: Spontaneous
  Country: SI (occurrence: SI)
  Receive Date: 20170214
  Receipt Date: 20170214
  Transmission Date: 20170428
  Serious: Yes (Death)
  Sender: FDA-Public Use
  Company Number: SI-ABBVIE-17P-261-1839196-00

PATIENT
  Age: 24 Day
  Sex: Female
  Weight: 3 kg

DRUGS (37)
  1. FUROSEMID [Concomitant]
     Active Substance: FUROSEMIDE
     Indication: PRODUCT USED FOR UNKNOWN INDICATION
  2. MIDAZOLAM [Concomitant]
     Active Substance: MIDAZOLAM HYDROCHLORIDE
     Indication: PRODUCT USED FOR UNKNOWN INDICATION
     Dosage: 25 MG/50 ML 5% GLUCOSE
  3. MIDAZOLAM [Concomitant]
     Active Substance: MIDAZOLAM HYDROCHLORIDE
  4. NATRIJEV KLORID [Concomitant]
     Indication: PRODUCT USED FOR UNKNOWN INDICATION
     Dosage: 1 M
  5. RINGER SOLUTION [Concomitant]
     Indication: PRODUCT USED FOR UNKNOWN INDICATION
  6. KALIJEV KLORID [Concomitant]
     Indication: PRODUCT USED FOR UNKNOWN INDICATION
     Dosage: 1M
  7. KLONIDIN [Concomitant]
     Indication: PRODUCT USED FOR UNKNOWN INDICATION
  8. SPIRONOLAKTON [Concomitant]
     Active Substance: SPIRONOLACTONE
     Indication: PRODUCT USED FOR UNKNOWN INDICATION
  9. NATRIJEV HIDROGENKARBONAT [Concomitant]
     Indication: PRODUCT USED FOR UNKNOWN INDICATION
     Dosage: 1M
  10. VANKOMICIN [Concomitant]
     Indication: PRODUCT USED FOR UNKNOWN INDICATION
     Dosage: 1 M
  11. GLUCOSE-1-PHOSPHAT FRESENIUS [Concomitant]
     Indication: PRODUCT USED FOR UNKNOWN INDICATION
  12. AMPICILLINA [Concomitant]
     Active Substance: AMPICILLIN SODIUM
     Indication: PRODUCT USED FOR UNKNOWN INDICATION
  13. GLUCOSE [Concomitant]
     Active Substance: DEXTROSE
  14. EXETAMIN [Concomitant]
     Indication: PRODUCT USED FOR UNKNOWN INDICATION
  15. DOPAMIN [Concomitant]
     Active Substance: DOPAMINE HYDROCHLORIDE
     Indication: PRODUCT USED FOR UNKNOWN INDICATION
     Dosage: 50 MG/50 ML 5% ML GLUCOSE
  16. PIPERACILIN/TAZOBAKTAM [Concomitant]
     Indication: INFECTION
     Dosage: 2G/0,25G
     Route: 042
  17. FENTANIL [Concomitant]
     Active Substance: FENTANYL
     Indication: PRODUCT USED FOR UNKNOWN INDICATION
     Dosage: 50 MCG/ML
  18. EDEMID [Concomitant]
     Active Substance: FUROSEMIDE
     Indication: PRODUCT USED FOR UNKNOWN INDICATION
  19. CHOLECALCIFEROL [Concomitant]
     Active Substance: CHOLECALCIFEROL
     Indication: PRODUCT USED FOR UNKNOWN INDICATION
     Dosage: 200 I.E. /1 DROP
  20. PARACETAMOL [Concomitant]
     Active Substance: ACETAMINOPHEN
     Indication: PRODUCT USED FOR UNKNOWN INDICATION
  21. MAGNESIUM SULFATE. [Concomitant]
     Active Substance: MAGNESIUM SULFATE
     Indication: PRODUCT USED FOR UNKNOWN INDICATION
     Dosage: 1 M 20 ML
  22. SYNAGIS [Suspect]
     Active Substance: PALIVIZUMAB
     Indication: HEART DISEASE CONGENITAL
  23. HARTMANN SOLUTION [Concomitant]
     Indication: PRODUCT USED FOR UNKNOWN INDICATION
  24. VECURONIUM INRESA [Concomitant]
     Indication: PRODUCT USED FOR UNKNOWN INDICATION
  25. PANTOPRAZOL [Concomitant]
     Active Substance: PANTOPRAZOLE SODIUM
     Indication: PRODUCT USED FOR UNKNOWN INDICATION
  26. OSPEN [Concomitant]
     Active Substance: PENICILLIN V
     Indication: PRODUCT USED FOR UNKNOWN INDICATION
     Dosage: 750 000 I.E./5 ML
  27. SYNAGIS [Suspect]
     Active Substance: PALIVIZUMAB
     Indication: RESPIRATORY SYNCYTIAL VIRUS INFECTION
     Route: 030
     Dates: start: 20161216, end: 20161216
  28. PROSTIN [Concomitant]
     Active Substance: ALPROSTADIL
     Indication: PRODUCT USED FOR UNKNOWN INDICATION
     Dosage: 500 MCG/ML
  29. KLORALHIDRAT [Concomitant]
     Indication: PRODUCT USED FOR UNKNOWN INDICATION
  30. ANALGIN [Concomitant]
     Active Substance: METAMIZOLE SODIUM
     Indication: PRODUCT USED FOR UNKNOWN INDICATION
  31. CONCENTRATED ERITROCITES [Concomitant]
     Indication: PRODUCT USED FOR UNKNOWN INDICATION
     Dosage: 1M
  32. KALCIJEV GLICEROFOSFAT [Concomitant]
     Indication: PRODUCT USED FOR UNKNOWN INDICATION
     Dosage: 100 MG =0,5 MMOLCALCII AND 0.5MMOL PHOSPHATUM
  33. GLUCOSE [Concomitant]
     Active Substance: DEXTROSE
     Indication: PRODUCT USED FOR UNKNOWN INDICATION
  34. GLUCOSE [Concomitant]
     Active Substance: DEXTROSE
  35. GARAMYCIN [Concomitant]
     Active Substance: GENTAMICIN SULFATE
     Indication: PRODUCT USED FOR UNKNOWN INDICATION
  36. CALCUMI GLUCONATE [Concomitant]
     Indication: PRODUCT USED FOR UNKNOWN INDICATION
     Dosage: 10 % CALCII GLUCONATE DILUTED 1:1 WITH 5% GLUCOSE
  37. KALIJEV FOSFATO [Concomitant]
     Indication: PRODUCT USED FOR UNKNOWN INDICATION
     Dosage: 1M

REACTIONS (4)
  - Shock [Fatal]
  - Haematochezia [Fatal]
  - Multiple organ dysfunction syndrome [Fatal]
  - Infection [Fatal]

NARRATIVE: CASE EVENT DATE: 20161217
